FAERS Safety Report 6438577-7 (Version None)
Quarter: 2009Q4

REPORT INFORMATION
  Report Type: 
  Country: None (occurrence: None)
  Receive Date: 20091112
  Receipt Date: 20091029
  Transmission Date: 20100525
  Serious: No
  Sender: FDA-Public Use
  Company Number: US-ALLERGAN-0915072US

PATIENT
  Sex: Female

DRUGS (3)
  1. COMBIGAN [Suspect]
     Indication: DRUG USE FOR UNKNOWN INDICATION
     Dosage: 1 GTT, BID
     Dates: start: 20091001
  2. SYNTHROID [Concomitant]
     Indication: HYPOTHYROIDISM
  3. ALEVE [Concomitant]
     Indication: ARTHRALGIA

REACTIONS (2)
  - DIZZINESS [None]
  - MYDRIASIS [None]
